FAERS Safety Report 15367049 (Version 1)
Quarter: 2018Q3

REPORT INFORMATION
  Report Type: Spontaneous
  Country: US (occurrence: US)
  Receive Date: 20180903
  Receipt Date: 20180903
  Transmission Date: 20181010
  Serious: Yes (Other)
  Sender: FDA-Public Use
  Company Number: None

PATIENT
  Age: 56 Year
  Sex: Female
  Weight: 67.5 kg

DRUGS (2)
  1. VALSARTAN. [Suspect]
     Active Substance: VALSARTAN
     Indication: HYPERTENSION
     Dosage: ?          QUANTITY:90 DF DOSAGE FORM;?
     Route: 048
  2. ASPRIN [Concomitant]
     Active Substance: ASPIRIN

REACTIONS (2)
  - Rash [None]
  - Alopecia [None]

NARRATIVE: CASE EVENT DATE: 20180701
